FAERS Safety Report 14225210 (Version 3)
Quarter: 2018Q2

REPORT INFORMATION
  Report Type: Spontaneous
  Country: IT (occurrence: IT)
  Receive Date: 20171127
  Receipt Date: 20180528
  Transmission Date: 20180711
  Serious: Yes (Other)
  Sender: FDA-Public Use
  Company Number: IT-ROCHE-2029106

PATIENT
  Age: 2 Year
  Sex: Male

DRUGS (15)
  1. MIDAZOLAM [Suspect]
     Active Substance: MIDAZOLAM HYDROCHLORIDE
     Indication: SEDATION
     Dosage: DAY 1: 0.03 MG/KG/HR (10 HR)
     Route: 042
  2. DIAZEPAM. [Suspect]
     Active Substance: DIAZEPAM
     Indication: SEDATION
     Route: 048
  3. PROPOFOL. [Suspect]
     Active Substance: PROPOFOL
     Dosage: DAY 4: 5.38 MG/KG/HR (14 HR)
     Route: 042
  4. HYDROXYZINE [Suspect]
     Active Substance: HYDROXYZINE HYDROCHLORIDE
     Dosage: DAY 4
     Route: 050
  5. PROPOFOL. [Suspect]
     Active Substance: PROPOFOL
     Indication: SEDATION
     Dosage: DAY 1: 8 MG/KG/HR (4 HR)
     Route: 042
  6. PROPOFOL. [Suspect]
     Active Substance: PROPOFOL
     Dosage: DAY 3: 4 MG/KG/HR (24 HR)
     Route: 042
  7. MIDAZOLAM [Suspect]
     Active Substance: MIDAZOLAM HYDROCHLORIDE
     Dosage: DAY 3: 0.16 MG/KG/HR (16 HR)
     Route: 040
  8. DIAZEPAM. [Suspect]
     Active Substance: DIAZEPAM
     Route: 048
  9. MIDAZOLAM [Suspect]
     Active Substance: MIDAZOLAM HYDROCHLORIDE
     Dosage: DAY 2: 0.16 MG/KG/HR (24 HR)
     Route: 040
  10. MIDAZOLAM [Suspect]
     Active Substance: MIDAZOLAM HYDROCHLORIDE
     Dosage: DAY 4: 0.17 MG/KG/HR (16 HR)
     Route: 040
  11. PROPOFOL. [Suspect]
     Active Substance: PROPOFOL
     Dosage: DAY 2: 0.93 MG/KG/HR (24 HR)
     Route: 042
  12. HYDROXYZINE [Suspect]
     Active Substance: HYDROXYZINE HYDROCHLORIDE
     Indication: SEDATION
     Dosage: DAY 2
     Route: 050
  13. HYDROXYZINE [Suspect]
     Active Substance: HYDROXYZINE HYDROCHLORIDE
     Dosage: DAY 3
     Route: 050
  14. FENTANYL. [Concomitant]
     Active Substance: FENTANYL
     Dosage: DAY 3: 0.95 LG/KG/HR (24 HR)
     Route: 065
  15. FENTANYL. [Concomitant]
     Active Substance: FENTANYL
     Dosage: DAY 4: 0.65 LG/KG/HR (16 HR)
     Route: 065

REACTIONS (1)
  - Drug withdrawal syndrome [Recovered/Resolved]
